FAERS Safety Report 8761284 (Version 1)
Quarter: 2012Q4

REPORT INFORMATION
  Report Type: 
  Country: FR (occurrence: FR)
  Receive Date: 20120830
  Receipt Date: 20120830
  Transmission Date: 20130627
  Serious: Yes (Hospitalization, Other)
  Sender: FDA-Public Use
  Company Number: FR-ASTRAZENECA-2012SE61201

PATIENT
  Age: 78 Year
  Sex: Female

DRUGS (9)
  1. CRESTOR [Suspect]
     Route: 048
     Dates: end: 20120328
  2. MOPRAL [Concomitant]
  3. BIPRETERAX [Concomitant]
  4. AMLODIPINE [Concomitant]
  5. ASPEGIC [Concomitant]
  6. PLAVIX [Concomitant]
  7. AMAREL [Concomitant]
  8. METFORMINE [Concomitant]
  9. TAHOR [Concomitant]
     Dates: start: 200907

REACTIONS (5)
  - Renal failure [Recovered/Resolved]
  - Hypocholesterolaemia [Unknown]
  - Cognitive disorder [Unknown]
  - Thrombocytosis [Unknown]
  - Rhabdomyolysis [Recovering/Resolving]
